FAERS Safety Report 6691991-7 (Version None)
Quarter: 2010Q2

REPORT INFORMATION
  Report Type: 
  Country: None (occurrence: None)
  Receive Date: 20100419
  Receipt Date: 20100326
  Transmission Date: 20101027
  Serious: Yes (Other)
  Sender: FDA-Public Use
  Company Number: 230494J10BRA

PATIENT
  Age: 51 Year
  Sex: Female

DRUGS (6)
  1. REBIF [Suspect]
     Dosage: 22 MCG, 1 IN 1 WK
     Dates: start: 20010101, end: 20080903
  2. REBIF [Suspect]
     Dosage: 22 MCG, 1 IN 1 WK
     Dates: start: 20080930, end: 20081030
  3. REBIF [Suspect]
     Dosage: 22 MCG, 1 IN 1 WK
     Dates: start: 20081030
  4. CAPTOPRIL [Concomitant]
  5. HYDROCHLOROTHIAZIDE [Concomitant]
  6. DAFLON (CAPIVEN) [Concomitant]

REACTIONS (11)
  - BLOOD PRESSURE INCREASED [None]
  - HEADACHE [None]
  - HEPATIC ENZYME INCREASED [None]
  - INFLUENZA LIKE ILLNESS [None]
  - MAMMOGRAM ABNORMAL [None]
  - NEURALGIA [None]
  - OEDEMA PERIPHERAL [None]
  - PARAESTHESIA [None]
  - PAROSMIA [None]
  - SENSATION OF HEAVINESS [None]
  - VENOUS OCCLUSION [None]
